FAERS Safety Report 18817770 (Version 1)
Quarter: 2021Q1

REPORT INFORMATION
  Report Type: Report from Study
  Country: US (occurrence: US)
  Receive Date: 20210201
  Receipt Date: 20210201
  Transmission Date: 20210419
  Serious: Yes (Other)
  Sender: FDA-Public Use
  Company Number: US-GILEAD-2021-0515208

PATIENT
  Sex: Female

DRUGS (1)
  1. BICTEGRAVIR W/EMTRICITABINE/TENOFOVIR ALAFENAMIDE [Suspect]
     Active Substance: BICTEGRAVIR\EMTRICITABINE\TENOFOVIR ALAFENAMIDE
     Indication: HIV INFECTION
     Dosage: 275 MG, QD
     Route: 048
     Dates: start: 202012

REACTIONS (7)
  - Viral infection [Unknown]
  - Chills [Unknown]
  - Weight decreased [Unknown]
  - Pyrexia [Unknown]
  - Cardiac operation [Unknown]
  - Decreased appetite [Unknown]
  - Dysphagia [Unknown]
